FAERS Safety Report 10651248 (Version 3)
Quarter: 2014Q4

REPORT INFORMATION
  Report Type: Report from Study
  Country: IT (occurrence: IT)
  Receive Date: 20141215
  Receipt Date: 20141224
  Transmission Date: 20150529
  Serious: Yes (Death, Other)
  Sender: FDA-Public Use
  Company Number: IT-ROCHE-662018

PATIENT

DRUGS (3)
  1. BORTEZOMIB [Suspect]
     Active Substance: BORTEZOMIB
     Dosage: 2 COURSES OF 4 WEEKLY DOSES AS SINGLE AGENT
     Route: 040
  2. RITUXIMAB [Suspect]
     Active Substance: RITUXIMAB
     Indication: NON-HODGKIN^S LYMPHOMA
     Dosage: ONE COURSE OF FOUR WEEKLY DOSES, FORM INFUSION
     Route: 042
  3. BORTEZOMIB [Suspect]
     Active Substance: BORTEZOMIB
     Indication: NON-HODGKIN^S LYMPHOMA
     Dosage: ONE COURSE OF FOUR WEEKLY DOSES
     Route: 040

REACTIONS (14)
  - Thrombocytopenia [Unknown]
  - Pleural effusion [Unknown]
  - Multi-organ failure [Unknown]
  - Constipation [Unknown]
  - Sepsis [Unknown]
  - Pneumonia bacterial [Unknown]
  - Neutropenia [Unknown]
  - Pneumonitis [Unknown]
  - Viral infection [Unknown]
  - Fungal infection [Unknown]
  - Interstitial lung disease [Fatal]
  - Gastrointestinal carcinoma [Unknown]
  - Neurotoxicity [Recovered/Resolved]
  - Diarrhoea [Unknown]
